FAERS Safety Report 9999680 (Version 1)
Quarter: 2014Q1

REPORT INFORMATION
  Report Type: Spontaneous
  Country: US (occurrence: US)
  Receive Date: 20140312
  Receipt Date: 20140312
  Transmission Date: 20141002
  Serious: Yes (Death, Hospitalization)
  Sender: FDA-Public Use
  Company Number: US-CELGENEUS-163-POMAL-14030241

PATIENT
  Age: 78 Year
  Sex: Female
  Weight: 62.65 kg

DRUGS (1)
  1. POMALYST [Suspect]
     Indication: PLASMA CELL MYELOMA
     Dosage: 4 MILLIGRAM
     Route: 048
     Dates: start: 201305, end: 201402

REACTIONS (5)
  - Kidney infection [Fatal]
  - Sepsis [Fatal]
  - Plasma cell myeloma [Fatal]
  - Pneumonia [Fatal]
  - Renal failure [Fatal]
